FAERS Safety Report 15995802 (Version 1)
Quarter: 2019Q1

REPORT INFORMATION
  Report Type: Spontaneous
  Country: US (occurrence: US)
  Receive Date: 20190222
  Receipt Date: 20190222
  Transmission Date: 20190418
  Serious: No
  Sender: FDA-Public Use
  Company Number: US-PERRIGO-18US000747

PATIENT
  Age: 21 Year
  Sex: Male
  Weight: 81.63 kg

DRUGS (1)
  1. LOPERAMIDE HYDROCHLORIDE. [Suspect]
     Active Substance: LOPERAMIDE HYDROCHLORIDE
     Indication: DIARRHOEA
     Dosage: 2 MG, TWICE
     Route: 048
     Dates: start: 20180123, end: 20180123

REACTIONS (5)
  - Drug ineffective [Unknown]
  - Vomiting [Recovered/Resolved]
  - Pruritus [Unknown]
  - Intentional product use issue [Recovered/Resolved]
  - Erythema [Unknown]

NARRATIVE: CASE EVENT DATE: 20180123
